FAERS Safety Report 16290770 (Version 1)
Quarter: 2019Q2

REPORT INFORMATION
  Report Type: Spontaneous
  Country: US (occurrence: US)
  Receive Date: 20190509
  Receipt Date: 20190509
  Transmission Date: 20190711
  Serious: No
  Sender: FDA-Public Use
  Company Number: US-PFIZER INC-2019193349

PATIENT
  Age: 83 Year
  Sex: Female
  Weight: 178 kg

DRUGS (2)
  1. CELEBREX [Suspect]
     Active Substance: CELECOXIB
     Indication: LOWER LIMB FRACTURE
     Dosage: 200 MG, 1X/DAY
     Route: 048
  2. CELEBREX [Suspect]
     Active Substance: CELECOXIB
     Indication: LUMBAR SPINAL STENOSIS

REACTIONS (1)
  - Intentional product misuse [Unknown]
